APPROVED DRUG PRODUCT: CEDILANID-D
Active Ingredient: DESLANOSIDE
Strength: 0.2MG/ML
Dosage Form/Route: INJECTABLE;INJECTION
Application: N009282 | Product #002
Applicant: NOVARTIS PHARMACEUTICALS CORP
Approved: Approved Prior to Jan 1, 1982 | RLD: No | RS: No | Type: DISCN